FAERS Safety Report 9822824 (Version 1)
Quarter: 2014Q1

REPORT INFORMATION
  Report Type: Spontaneous
  Country: CA (occurrence: CA)
  Receive Date: 20140116
  Receipt Date: 20140116
  Transmission Date: 20141002
  Serious: Yes (Death)
  Sender: FDA-Public Use
  Company Number: CA-009507513-1401CAN005524

PATIENT
  Age: 82 Year
  Sex: Female

DRUGS (1)
  1. SINGULAIR [Suspect]
     Dosage: QD, (THERAPY DURATION UNKNOWN)
     Route: 048

REACTIONS (1)
  - Death [Fatal]
